FAERS Safety Report 15009679 (Version 1)
Quarter: 2018Q2

REPORT INFORMATION
  Report Type: Spontaneous
  Country: US (occurrence: US)
  Receive Date: 20180614
  Receipt Date: 20180614
  Transmission Date: 20180711
  Serious: No
  Sender: FDA-Public Use
  Company Number: US-AUROBINDO-AUR-APU-2018-014392

PATIENT
  Sex: Female

DRUGS (1)
  1. OLANZAPINE TABLETS 5MG [Suspect]
     Active Substance: OLANZAPINE
     Indication: BIPOLAR DISORDER
     Dosage: BOTTLES OF 30
     Route: 065
     Dates: end: 201709

REACTIONS (1)
  - Therapy non-responder [Unknown]
